FAERS Safety Report 25531629 (Version 1)
Quarter: 2025Q3

REPORT INFORMATION
  Report Type: Report from Study
  Country: CL (occurrence: CL)
  Receive Date: 20250709
  Receipt Date: 20250709
  Transmission Date: 20251021
  Serious: Yes (Death, Other)
  Sender: SANDOZ
  Company Number: CL-SANDOZ-SDZ2025CL048210

PATIENT
  Age: 10 Year
  Sex: Female

DRUGS (1)
  1. OMNITROPE [Suspect]
     Active Substance: SOMATROPIN
     Indication: Turner^s syndrome
     Dosage: 1.5 MG, QD, OMNITROPE 10 MG
     Route: 058
     Dates: start: 20231010

REACTIONS (1)
  - Death [Fatal]

NARRATIVE: CASE EVENT DATE: 20250220
